FAERS Safety Report 9190532 (Version 1)
Quarter: 2013Q1

REPORT INFORMATION
  Report Type: Spontaneous
  Country: US (occurrence: US)
  Receive Date: 20130326
  Receipt Date: 20130326
  Transmission Date: 20140127
  Serious: Yes (Hospitalization)
  Sender: FDA-Public Use
  Company Number: US-JNJFOC-20130309030

PATIENT
  Sex: Female

DRUGS (1)
  1. VISINE TOTALITY MULTI SYMPTOM RELIEF [Suspect]
     Indication: PRODUCT USED FOR UNKNOWN INDICATION
     Route: 048

REACTIONS (4)
  - Poisoning deliberate [Unknown]
  - Accidental exposure to product [Unknown]
  - Malaise [Recovering/Resolving]
  - Victim of crime [None]
